FAERS Safety Report 7954762-7 (Version None)
Quarter: 2011Q4

REPORT INFORMATION
  Report Type: 
  Country: None (occurrence: None)
  Receive Date: 20111202
  Receipt Date: 20111125
  Transmission Date: 20120403
  Serious: Yes (Hospitalization)
  Sender: FDA-Public Use
  Company Number: EC-B.I. PHARMACEUTICALS,INC./RIDGEFIELD-2011-RA-00353RA

PATIENT
  Age: 79 Year
  Sex: Female

DRUGS (4)
  1. LOSARTAN POTASSIUM [Concomitant]
     Indication: HYPERTENSION
  2. DABIGATRAN ETEXILATE [Suspect]
     Indication: ATRIAL FIBRILLATION
     Dosage: 220 MG
     Route: 048
     Dates: start: 20110201
  3. ATORVASTATINA [Concomitant]
     Indication: HYPERCHOLESTEROLAEMIA
  4. SOMAZINA [Concomitant]
     Indication: CEREBROVASCULAR ACCIDENT

REACTIONS (1)
  - CEREBRAL INFARCTION [None]
